FAERS Safety Report 22982074 (Version 2)
Quarter: 2023Q4

REPORT INFORMATION
  Report Type: Report from Study
  Country: US (occurrence: US)
  Receive Date: 20230926
  Receipt Date: 20231007
  Transmission Date: 20240110
  Serious: Yes (Other)
  Sender: FDA-Public Use
  Company Number: US-drreddys-CLI/USA/23/0177077

PATIENT
  Age: 27 Year
  Sex: Female

DRUGS (2)
  1. ZENATANE [Suspect]
     Active Substance: ISOTRETINOIN
     Indication: Acne
     Dosage: RMA ISSUE DATES: 16 DECEMBER 2022 11:16:06 AM
     Dates: start: 20220906, end: 202212
  2. ZENATANE [Suspect]
     Active Substance: ISOTRETINOIN
     Dates: start: 202307, end: 20230814

REACTIONS (6)
  - Exposure during pregnancy [Unknown]
  - Bone pain [Recovered/Resolved]
  - Headache [Recovered/Resolved]
  - Headache [Recovered/Resolved]
  - Dry skin [Recovered/Resolved]
  - Incorrect dose administered [Unknown]

NARRATIVE: CASE EVENT DATE: 20220101
